FAERS Safety Report 8211042-2 (Version None)
Quarter: 2012Q1

REPORT INFORMATION
  Report Type: 
  Country: None (occurrence: None)
  Receive Date: 20120315
  Receipt Date: 20120307
  Transmission Date: 20120608
  Serious: Yes (Other)
  Sender: FDA-Public Use
  Company Number: PHEH2012US005724

PATIENT
  Sex: Female

DRUGS (1)
  1. AREDIA [Suspect]
     Indication: HYPERCALCAEMIA
     Dosage: 90 MG, UNK
     Route: 042

REACTIONS (8)
  - ATELECTASIS [None]
  - GASTROINTESTINAL HAEMORRHAGE [None]
  - COMPRESSION FRACTURE [None]
  - PLEURAL EFFUSION [None]
  - MULTIPLE MYELOMA [None]
  - CHOLECYSTITIS [None]
  - INTERVERTEBRAL DISC DEGENERATION [None]
  - OSTEOLYSIS [None]
